FAERS Safety Report 9276749 (Version 1)
Quarter: 2013Q2

REPORT INFORMATION
  Report Type: Spontaneous
  Country: US (occurrence: US)
  Receive Date: 20130507
  Receipt Date: 20130507
  Transmission Date: 20140414
  Serious: No
  Sender: FDA-Public Use
  Company Number: US-ASTRAZENECA-2013SE28181

PATIENT
  Age: 74 Year
  Sex: Male
  Weight: 84 kg

DRUGS (4)
  1. BRILINTA [Suspect]
     Indication: DRUG HYPERSENSITIVITY
     Route: 048
     Dates: start: 20130417
  2. CLOPIDOGREL [Suspect]
     Route: 048
  3. UNSPECIFIED INGREDIENTS [Suspect]
     Indication: ANGIOGRAM
     Route: 042
  4. INTEGRILIN [Suspect]
     Indication: STENT PLACEMENT
     Route: 065

REACTIONS (1)
  - Rash generalised [Unknown]
